FAERS Safety Report 10786267 (Version 1)
Quarter: 2015Q1

REPORT INFORMATION
  Report Type: Spontaneous
  Country: IT (occurrence: IT)
  Receive Date: 20150211
  Receipt Date: 20150211
  Transmission Date: 20150721
  Serious: Yes (Other)
  Sender: FDA-Public Use
  Company Number: IT-JNJFOC-20150203721

PATIENT
  Age: 33 Year
  Sex: Female

DRUGS (7)
  1. MTX [Concomitant]
     Active Substance: METHOTREXATE SODIUM
     Indication: IRIDOCYCLITIS
     Route: 065
  2. INFLIXIMAB, RECOMBINANT [Suspect]
     Active Substance: INFLIXIMAB
     Indication: SARCOIDOSIS
     Route: 042
     Dates: start: 201102
  3. DEFLAZACORT [Concomitant]
     Active Substance: DEFLAZACORT
     Indication: IRIDOCYCLITIS
     Route: 065
  4. INFLIXIMAB, RECOMBINANT [Suspect]
     Active Substance: INFLIXIMAB
     Indication: CHORIORETINITIS
     Route: 042
     Dates: start: 201005
  5. INFLIXIMAB, RECOMBINANT [Suspect]
     Active Substance: INFLIXIMAB
     Indication: SARCOIDOSIS
     Route: 042
     Dates: start: 201005
  6. MTX [Concomitant]
     Active Substance: METHOTREXATE SODIUM
     Indication: IRIDOCYCLITIS
     Route: 065
     Dates: start: 2004
  7. INFLIXIMAB, RECOMBINANT [Suspect]
     Active Substance: INFLIXIMAB
     Indication: CHORIORETINITIS
     Route: 042
     Dates: start: 201102

REACTIONS (2)
  - Chorioretinitis [Recovered/Resolved]
  - Product use issue [Unknown]

NARRATIVE: CASE EVENT DATE: 201005
